FAERS Safety Report 9307598 (Version 1)
Quarter: 2013Q2

REPORT INFORMATION
  Report Type: Spontaneous
  Country: US (occurrence: US)
  Receive Date: 20130524
  Receipt Date: 20130524
  Transmission Date: 20140414
  Serious: No
  Sender: FDA-Public Use
  Company Number: US-PFIZER INC-2013158686

PATIENT
  Age: 33 Year
  Sex: Male
  Weight: 102 kg

DRUGS (1)
  1. ZOLOFT [Suspect]
     Indication: ANXIETY
     Dosage: 50MG DAILY
     Dates: start: 2013

REACTIONS (1)
  - Heart rate increased [Unknown]
